FAERS Safety Report 12912657 (Version 2)
Quarter: 2018Q1

REPORT INFORMATION
  Report Type: Report from Study
  Country: US (occurrence: US)
  Receive Date: 20161104
  Receipt Date: 20180130
  Transmission Date: 20180508
  Serious: Yes (Other)
  Sender: FDA-Public Use
  Company Number: US-JNJFOC-20161103941

PATIENT
  Sex: Male

DRUGS (4)
  1. OMEGA III [Concomitant]
  2. IMBRUVICA [Suspect]
     Active Substance: IBRUTINIB
     Indication: B-CELL LYMPHOMA
     Route: 048
  3. RAPAFLO [Concomitant]
     Active Substance: SILODOSIN
  4. IMBRUVICA [Suspect]
     Active Substance: IBRUTINIB
     Indication: B-CELL LYMPHOMA
     Route: 048
     Dates: start: 20161011

REACTIONS (5)
  - Incorrect dose administered [Unknown]
  - White blood cell count abnormal [Unknown]
  - Fall [Unknown]
  - Platelet count decreased [Unknown]
  - Off label use [Unknown]
